FAERS Safety Report 21339422 (Version 1)
Quarter: 2022Q3

REPORT INFORMATION
  Report Type: Spontaneous
  Country: MX (occurrence: MX)
  Receive Date: 20220915
  Receipt Date: 20220915
  Transmission Date: 20221027
  Serious: Yes (Death, Other)
  Sender: FDA-Public Use
  Company Number: MX-JAZZ-2022-MX-029415

PATIENT

DRUGS (1)
  1. ASPARAGINASE [Suspect]
     Active Substance: ASPARAGINASE
     Indication: Acute lymphocytic leukaemia
     Dosage: 6,000 UI/M 2 IM, D 8, 10, 12, 15, 17, 19, 22, 24, 26

REACTIONS (5)
  - Death [Fatal]
  - Febrile neutropenia [Unknown]
  - Hepatotoxicity [Unknown]
  - Thrombosis [Unknown]
  - Haemorrhage [Unknown]
